FAERS Safety Report 19903697 (Version 1)
Quarter: 2021Q4

REPORT INFORMATION
  Report Type: Spontaneous
  Country: LT (occurrence: LT)
  Receive Date: 20211001
  Receipt Date: 20211001
  Transmission Date: 20220303
  Serious: Yes (Other)
  Sender: FDA-Public Use
  Company Number: LT-MLMSERVICE-20210913-3102775-1

PATIENT
  Age: 66 Year
  Sex: Male

DRUGS (1)
  1. ATORVASTATIN CALCIUM [Suspect]
     Active Substance: ATORVASTATIN CALCIUM
     Indication: Myocardial infarction
     Dosage: 80 MILLIGRAM
     Route: 065

REACTIONS (3)
  - Immune-mediated myositis [Recovering/Resolving]
  - Polymyositis [Recovering/Resolving]
  - Toxicity to various agents [Recovering/Resolving]
